FAERS Safety Report 24320112 (Version 1)
Quarter: 2024Q3

REPORT INFORMATION
  Report Type: Report from Study
  Country: HU (occurrence: HU)
  Receive Date: 20240914
  Receipt Date: 20240914
  Transmission Date: 20241016
  Serious: Yes (Death, Hospitalization, Other)
  Sender: UCB
  Company Number: HU-UCBSA-2024043949

PATIENT
  Age: 73 Year
  Sex: Female

DRUGS (1)
  1. CIMZIA [Suspect]
     Active Substance: CERTOLIZUMAB PEGOL
     Indication: Rheumatoid arthritis
     Dosage: UNK UNK, EV 2 WEEKS(QOW)
     Dates: start: 202403, end: 20240610

REACTIONS (9)
  - Cardiac failure [Fatal]
  - Sepsis [Unknown]
  - Acute respiratory failure [Unknown]
  - Chronic kidney disease [Unknown]
  - Multiple organ dysfunction syndrome [Unknown]
  - Cardiac arrest [Unknown]
  - Acute kidney injury [Unknown]
  - Pneumonia [Unknown]
  - Bradycardia [Unknown]

NARRATIVE: CASE EVENT DATE: 20240720
